FAERS Safety Report 6071216-6 (Version None)
Quarter: 2009Q1

REPORT INFORMATION
  Report Type: 
  Country: None (occurrence: None)
  Receive Date: 20090209
  Receipt Date: 20081208
  Transmission Date: 20090719
  Serious: No
  Sender: FDA-Public Use
  Company Number: A0759481A

PATIENT
  Age: 47 Year
  Sex: Female

DRUGS (1)
  1. HYCAMTIN [Suspect]
     Dates: start: 20081020, end: 20081120

REACTIONS (2)
  - HAIR GROWTH ABNORMAL [None]
  - SKIN DISCOLOURATION [None]
